FAERS Safety Report 9331100 (Version 1)
Quarter: 2013Q2

REPORT INFORMATION
  Report Type: Spontaneous
  Country: TR (occurrence: None)
  Receive Date: 20130531
  Receipt Date: 20130531
  Transmission Date: 20140414
  Serious: Yes (Hospitalization, Other)
  Sender: FDA-Public Use
  Company Number: 2013P1006259

PATIENT
  Age: 36 Year
  Sex: Female

DRUGS (1)
  1. BUPROPION [Suspect]
     Indication: SMOKING CESSATION THERAPY
     Route: 048

REACTIONS (8)
  - Headache [None]
  - Somnolence [None]
  - Grand mal convulsion [None]
  - Coma scale abnormal [None]
  - Blood pressure decreased [None]
  - Overdose [None]
  - Status epilepticus [None]
  - Poisoning [None]
